FAERS Safety Report 6030399-4 (Version None)
Quarter: 2008Q4

REPORT INFORMATION
  Report Type: 
  Country: None (occurrence: None)
  Receive Date: 20081222
  Receipt Date: 20081027
  Transmission Date: 20090506
  Serious: Yes (Other)
  Sender: FDA-Public Use
  Company Number: US-WYE-H06590608

PATIENT
  Age: 58 Year
  Sex: Male
  Weight: 99.88 kg

DRUGS (3)
  1. PRISTIQ [Suspect]
     Indication: DEPRESSION
     Dosage: 50 MG 1X PER 1 DAY, ORAL
     Route: 048
     Dates: start: 20080801
  2. BENADRYL [Suspect]
     Indication: HYPERSENSITIVITY
     Dosage: 25 MG PRN
  3. ALPRAZOLAM [Concomitant]

REACTIONS (2)
  - DRUG INTERACTION [None]
  - LETHARGY [None]
